FAERS Safety Report 11792224 (Version 3)
Quarter: 2017Q1

REPORT INFORMATION
  Report Type: Spontaneous
  Country: US (occurrence: US)
  Receive Date: 20151201
  Receipt Date: 20170113
  Transmission Date: 20170428
  Serious: Yes (Hospitalization, Other)
  Sender: FDA-Public Use
  Company Number: US-ASTRAZENECA-2015SF18728

PATIENT
  Age: 56 Year
  Sex: Female
  Weight: 77.1 kg

DRUGS (16)
  1. ASPIRIN. [Concomitant]
     Active Substance: ASPIRIN
     Indication: MYOCARDIAL INFARCTION
     Dosage: 81.0MG UNKNOWN
     Route: 048
     Dates: start: 2004
  2. ASPIRIN. [Concomitant]
     Active Substance: ASPIRIN
     Indication: MYOCARDIAL INFARCTION
     Dosage: DAILY UNKNOWN
     Route: 048
  3. POTASSIUM [Concomitant]
     Active Substance: POTASSIUM
     Indication: BLOOD POTASSIUM DECREASED
     Route: 048
  4. BRILINTA [Suspect]
     Active Substance: TICAGRELOR
     Indication: ACUTE CORONARY SYNDROME
     Route: 048
  5. BRILINTA [Suspect]
     Active Substance: TICAGRELOR
     Indication: ACUTE CORONARY SYNDROME
     Route: 048
     Dates: start: 2012
  6. METOPROLOL SUCCINATE. [Suspect]
     Active Substance: METOPROLOL SUCCINATE
     Indication: HYPERTENSION
     Route: 048
     Dates: start: 2004
  7. NITROLINGUAL [Concomitant]
     Active Substance: NITROGLYCERIN
     Indication: ANGINA PECTORIS
     Dosage: 100.0UG AS REQUIRED
     Route: 060
  8. DILANTIN [Concomitant]
     Active Substance: PHENYTOIN
     Indication: SEIZURE
     Route: 048
     Dates: start: 2015, end: 201511
  9. TORSEMIDE. [Concomitant]
     Active Substance: TORSEMIDE
     Indication: CARDIAC FAILURE CONGESTIVE
     Route: 048
  10. BRILINTA [Suspect]
     Active Substance: TICAGRELOR
     Indication: MYOCARDIAL INFARCTION
     Route: 048
  11. BRILINTA [Suspect]
     Active Substance: TICAGRELOR
     Indication: MYOCARDIAL INFARCTION
     Route: 048
     Dates: start: 2012
  12. PLAVIX [Suspect]
     Active Substance: CLOPIDOGREL BISULFATE
     Dosage: DOSING UNKNOWN
     Route: 048
     Dates: end: 2012
  13. LASIX [Concomitant]
     Active Substance: FUROSEMIDE
     Route: 065
  14. XANAX [Concomitant]
     Active Substance: ALPRAZOLAM
     Indication: ANXIETY
     Dosage: 0.5MG AS REQUIRED
     Route: 048
  15. KEPPRA [Concomitant]
     Active Substance: LEVETIRACETAM
     Indication: SEIZURE
     Route: 048
     Dates: start: 201510
  16. NITROLINGUAL [Concomitant]
     Active Substance: NITROGLYCERIN
     Indication: CHEST PAIN
     Dosage: 100.0UG AS REQUIRED
     Route: 060

REACTIONS (23)
  - Cardiac failure congestive [Unknown]
  - Anxiety [Unknown]
  - Intentional product misuse [Unknown]
  - Drug dose omission [Recovered/Resolved]
  - Seizure [Unknown]
  - Acute myocardial infarction [Unknown]
  - Confusional state [Unknown]
  - Decreased appetite [Not Recovered/Not Resolved]
  - Osteoporosis [Unknown]
  - Renal necrosis [Unknown]
  - Thrombosis [Unknown]
  - Myocardial infarction [Unknown]
  - Cerebrovascular accident [Unknown]
  - Weight decreased [Unknown]
  - Overweight [Unknown]
  - Hypokalaemia [Unknown]
  - Off label use [Not Recovered/Not Resolved]
  - Generalised tonic-clonic seizure [Unknown]
  - Coronary artery disease [Unknown]
  - Angina pectoris [Unknown]
  - Feeling abnormal [Unknown]
  - Loose tooth [Not Recovered/Not Resolved]
  - Headache [Unknown]

NARRATIVE: CASE EVENT DATE: 2004
